FAERS Safety Report 5519818-7 (Version None)
Quarter: 2007Q4

REPORT INFORMATION
  Report Type: 
  Country: None (occurrence: None)
  Receive Date: 20071116
  Receipt Date: 20070831
  Transmission Date: 20080405
  Serious: No
  Sender: FDA-Public Use
  Company Number: A0678105A

PATIENT
  Age: 57 Year
  Sex: Male

DRUGS (9)
  1. COREG CR [Suspect]
     Indication: DRUG USE FOR UNKNOWN INDICATION
     Dosage: 10MG PER DAY
     Route: 048
     Dates: start: 20070821
  2. NIASPAN [Concomitant]
  3. LISINOPRIL [Concomitant]
  4. CRESTOR [Concomitant]
  5. FLUOXETINE [Concomitant]
  6. ASPIRIN [Concomitant]
  7. VITAMIN [Concomitant]
  8. PEPCID [Concomitant]
  9. HYDROCHLOROTHIAZIDE [Concomitant]

REACTIONS (1)
  - ABDOMINAL PAIN UPPER [None]
